FAERS Safety Report 6486543-8 (Version None)
Quarter: 2009Q4

REPORT INFORMATION
  Report Type: 
  Country: None (occurrence: None)
  Receive Date: 20091210
  Receipt Date: 20091202
  Transmission Date: 20100525
  Serious: Yes (Hospitalization)
  Sender: FDA-Public Use
  Company Number: NO-JNJFOC-20091201047

PATIENT
  Sex: Male

DRUGS (4)
  1. FENTANYL CITRATE [Suspect]
     Indication: DRUG USE FOR UNKNOWN INDICATION
  2. VANCOMYCIN [Interacting]
     Indication: DRUG USE FOR UNKNOWN INDICATION
  3. REMIFENTANIL [Interacting]
     Indication: DRUG USE FOR UNKNOWN INDICATION
  4. PROPOFOL [Interacting]
     Indication: DRUG USE FOR UNKNOWN INDICATION

REACTIONS (2)
  - DRUG INTERACTION [None]
  - HYPERSENSITIVITY [None]
